APPROVED DRUG PRODUCT: VYXEOS
Active Ingredient: CYTARABINE; DAUNORUBICIN
Strength: 100MG;44MG
Dosage Form/Route: POWDER;INTRAVENOUS
Application: N209401 | Product #001
Applicant: JAZZ PHARMACEUTICALS THERAPEUTICS INC
Approved: Aug 3, 2017 | RLD: Yes | RS: Yes | Type: RX

PATENTS:
Patent 8022279 | Expires: Sep 14, 2027
Patent 7850990 | Expires: Jan 23, 2027
Patent 10835492 | Expires: Oct 15, 2032
Patent 10028912 | Expires: Oct 15, 2032
Patent 10028912 | Expires: Oct 15, 2032
Patent 10166184 | Expires: Oct 15, 2032
Patent 8092828 | Expires: Apr 1, 2029
Patent 8518437 | Expires: Jun 7, 2026
Patent 9271931 | Expires: Jan 23, 2027
Patent 10028912*PED | Expires: Apr 15, 2033
Patent 7850990*PED | Expires: Jul 23, 2027
Patent 8022279*PED | Expires: Mar 14, 2028
Patent 8092828*PED | Expires: Oct 1, 2029
Patent 9271931*PED | Expires: Jul 23, 2027
Patent 10835492*PED | Expires: Apr 15, 2033
Patent 10166184*PED | Expires: Apr 15, 2033

EXCLUSIVITY:
Code: ODE-350 | Date: Mar 30, 2028
Code: PED | Date: Sep 30, 2028